FAERS Safety Report 8524185-0 (Version None)
Quarter: 2012Q3

REPORT INFORMATION
  Report Type: 
  Country: None (occurrence: None)
  Receive Date: 20120720
  Receipt Date: 20120717
  Transmission Date: 20120928
  Serious: Yes (Life-Threatening, Hospitalization, Other)
  Sender: FDA-Public Use
  Company Number: FR-PFIZER INC-2012146161

PATIENT
  Age: 81 Year
  Sex: Female
  Weight: 58 kg

DRUGS (3)
  1. NEBIVOLOL HCL [Concomitant]
     Indication: HYPERTENSION
     Dosage: 5, 1 DF, 1X/DAY
     Route: 048
     Dates: start: 20100101
  2. SUTENT [Suspect]
     Indication: PANCREATIC NEUROENDOCRINE TUMOUR
     Dosage: 37.5 MG 1X/DAY, 4 WEEKS FOLLOWED BY 15 DAYS OFF
     Route: 048
     Dates: start: 20110601, end: 20120530
  3. ALDACTONE [Concomitant]
     Dosage: 25, 1 DF, 1X/DAY
     Route: 048
     Dates: start: 20100101

REACTIONS (1)
  - HYPOGLYCAEMIC COMA [None]
